FAERS Safety Report 7348734-3 (Version None)
Quarter: 2011Q1

REPORT INFORMATION
  Report Type: 
  Country: None (occurrence: None)
  Receive Date: 20110314
  Receipt Date: 20090901
  Transmission Date: 20110831
  Serious: No
  Sender: FDA-Public Use
  Company Number: 2009BI028256

PATIENT
  Sex: Female

DRUGS (6)
  1. NEURONTIN [Concomitant]
     Indication: MULTIPLE SCLEROSIS
  2. KEPPRA [Concomitant]
     Indication: CONVULSION
  3. TYSABRI [Suspect]
     Indication: MULTIPLE SCLEROSIS
     Route: 042
     Dates: start: 20071108, end: 20091201
  4. REBIF [Concomitant]
     Indication: MULTIPLE SCLEROSIS
     Dosage: DOSE UNIT:44
     Route: 058
     Dates: start: 20100319, end: 20110105
  5. BACLOFEN [Concomitant]
     Indication: MUSCLE SPASMS
  6. KLONOPIN [Concomitant]
     Indication: ANXIETY

REACTIONS (25)
  - TINNITUS [None]
  - PAIN [None]
  - UPPER RESPIRATORY TRACT INFECTION [None]
  - MUSCLE SPASMS [None]
  - DECREASED APPETITE [None]
  - DYSPNOEA [None]
  - WEIGHT INCREASED [None]
  - HYPOTHYROIDISM [None]
  - FATIGUE [None]
  - URTICARIA [None]
  - ASTHENIA [None]
  - LETHARGY [None]
  - HYPERCALCAEMIA [None]
  - KIDNEY INFECTION [None]
  - SINUSITIS [None]
  - PARANASAL SINUS HYPERSECRETION [None]
  - GAIT DISTURBANCE [None]
  - FLUSHING [None]
  - INFLUENZA [None]
  - INSOMNIA [None]
  - INFLUENZA LIKE ILLNESS [None]
  - RASH [None]
  - PYREXIA [None]
  - HEADACHE [None]
  - TREMOR [None]
